FAERS Safety Report 7490833-X (Version None)
Quarter: 2011Q2

REPORT INFORMATION
  Report Type: 
  Country: None (occurrence: None)
  Receive Date: 20110519
  Receipt Date: 20110513
  Transmission Date: 20111010
  Serious: Yes (Other)
  Sender: FDA-Public Use
  Company Number: US-ROXANE LABORATORIES, INC.-2011-RO-00653RO

PATIENT
  Age: 4 Year
  Sex: Male

DRUGS (2)
  1. DEXAMETHASONE [Suspect]
     Route: 042
  2. DEXAMETHASONE [Suspect]
     Dosage: 2 MG
     Route: 048

REACTIONS (1)
  - POSTERIOR REVERSIBLE ENCEPHALOPATHY SYNDROME [None]
